FAERS Safety Report 19514438 (Version 2)
Quarter: 2021Q3

REPORT INFORMATION
  Report Type: Spontaneous
  Country: US (occurrence: US)
  Receive Date: 20210709
  Receipt Date: 20210802
  Transmission Date: 20211014
  Serious: Yes (Hospitalization, Other)
  Sender: FDA-Public Use
  Company Number: US-SA-2021SA226232

PATIENT
  Age: 66 Year
  Sex: Female

DRUGS (12)
  1. POTASSIUM CHLORIDE. [Concomitant]
     Active Substance: POTASSIUM CHLORIDE
  2. HALOBETASOL [Concomitant]
     Active Substance: HALOBETASOL PROPIONATE
  3. TIZANIDINE. [Concomitant]
     Active Substance: TIZANIDINE
  4. PRAVASTATIN. [Concomitant]
     Active Substance: PRAVASTATIN
  5. OXYCODONE [Concomitant]
     Active Substance: OXYCODONE
  6. FUROSEMIDE. [Concomitant]
     Active Substance: FUROSEMIDE
  7. PAROXETINE. [Concomitant]
     Active Substance: PAROXETINE
  8. BETAMETH DIPROPIONATE [Concomitant]
  9. DUPIXENT [Suspect]
     Active Substance: DUPILUMAB
     Indication: DERMATITIS ATOPIC
     Dosage: 600 MG, 1X
     Route: 058
     Dates: start: 20210605, end: 20210605
  10. GABAPENTIN. [Concomitant]
     Active Substance: GABAPENTIN
  11. BUSPIRONE [Concomitant]
     Active Substance: BUSPIRONE HYDROCHLORIDE
  12. SILVER SULFADIAZIN [Concomitant]
     Active Substance: SILVER SULFADIAZINE

REACTIONS (4)
  - Illness [Not Recovered/Not Resolved]
  - Dermatitis atopic [Not Recovered/Not Resolved]
  - Cellulitis [Not Recovered/Not Resolved]
  - Sepsis [Not Recovered/Not Resolved]

NARRATIVE: CASE EVENT DATE: 20210606
